FAERS Safety Report 11423610 (Version 1)
Quarter: 2015Q3

REPORT INFORMATION
  Report Type: Spontaneous
  Country: US (occurrence: US)
  Receive Date: 20150827
  Receipt Date: 20150827
  Transmission Date: 20151125
  Serious: No
  Sender: FDA-Public Use
  Company Number: US-JNJFOC-20141006054

PATIENT
  Sex: Female

DRUGS (5)
  1. UNKNOWN MEDICATION [Concomitant]
     Active Substance: UNSPECIFIED INGREDIENT
     Indication: PRODUCT USED FOR UNKNOWN INDICATION
     Route: 065
  2. IBUPROFEN. [Suspect]
     Active Substance: IBUPROFEN
     Route: 048
  3. IBUPROFEN. [Suspect]
     Active Substance: IBUPROFEN
     Indication: PREMEDICATION
     Dosage: 60 MIN BEFORE THE PROCEDURE
     Route: 048
  4. MIDAZOLAM [Concomitant]
     Active Substance: MIDAZOLAM\MIDAZOLAM HYDROCHLORIDE
     Indication: ANXIETY
     Dosage: 5 ML OF ORAL, WITH A DOSE 2 MG/ML (TOTAL DOSE OF MIDAZOLAM IS 10 MG)
     Route: 048
  5. MIDAZOLAM [Concomitant]
     Active Substance: MIDAZOLAM\MIDAZOLAM HYDROCHLORIDE
     Indication: PAIN
     Dosage: 5 ML OF ORAL, WITH A DOSE 2 MG/ML (TOTAL DOSE OF MIDAZOLAM IS 10 MG)
     Route: 048

REACTIONS (2)
  - Product use issue [Unknown]
  - Exposure during pregnancy [Unknown]
